FAERS Safety Report 11431020 (Version 1)
Quarter: 2015Q3

REPORT INFORMATION
  Report Type: Spontaneous
  Country: CN (occurrence: CN)
  Receive Date: 20150828
  Receipt Date: 20150828
  Transmission Date: 20151125
  Serious: Yes (Hospitalization)
  Sender: FDA-Public Use
  Company Number: CN-BAUSCH-SYM-2013-02568

PATIENT
  Age: 61 Year
  Sex: Male

DRUGS (17)
  1. 5-FU [Suspect]
     Active Substance: FLUOROURACIL
     Dosage: EVERY OTHER WEEK
     Route: 040
     Dates: start: 20121229, end: 20121231
  2. PROMETHAZINE [Concomitant]
     Active Substance: PROMETHAZINE\PROMETHAZINE HYDROCHLORIDE
     Indication: PRODUCT USED FOR UNKNOWN INDICATION
     Dates: start: 20121229, end: 20121229
  3. IRINOTECAN [Suspect]
     Active Substance: IRINOTECAN
     Indication: COLORECTAL CANCER METASTATIC
     Dosage: EVERY OTHER WEEK
     Route: 042
     Dates: start: 20121229, end: 20121229
  4. LEUCOVORIN. [Suspect]
     Active Substance: LEUCOVORIN
     Route: 042
     Dates: start: 20130118, end: 20130118
  5. AFLIBERCEPT [Suspect]
     Active Substance: AFLIBERCEPT
     Dosage: EVERY OTHER WEEK
     Route: 042
     Dates: start: 20130118, end: 20130118
  6. 5-FU [Suspect]
     Active Substance: FLUOROURACIL
     Dosage: EVERY OTHER WEEK
     Route: 040
     Dates: start: 20130118, end: 20130118
  7. AFLIBERCEPT [Suspect]
     Active Substance: AFLIBERCEPT
     Indication: COLORECTAL CANCER METASTATIC
     Dosage: EVERY OTHER WEEK
     Route: 042
     Dates: start: 20121229, end: 20121229
  8. DEXAMETHASONE. [Concomitant]
     Active Substance: DEXAMETHASONE
     Indication: PRODUCT USED FOR UNKNOWN INDICATION
     Dates: start: 20121229, end: 20121229
  9. 5-FU [Suspect]
     Active Substance: FLUOROURACIL
     Indication: COLORECTAL CANCER METASTATIC
     Dosage: EVERY OTHER WEEK
     Route: 040
     Dates: start: 20121229, end: 20121229
  10. IRINOTECAN [Suspect]
     Active Substance: IRINOTECAN
     Dosage: EVERY OTHER WEEK
     Route: 042
     Dates: start: 20130206, end: 20130206
  11. LEUCOVORIN. [Suspect]
     Active Substance: LEUCOVORIN
     Route: 042
     Dates: start: 20130206, end: 20130206
  12. 5-FU [Suspect]
     Active Substance: FLUOROURACIL
     Dosage: EVERY OTHER WEEK
     Route: 041
     Dates: start: 20130206, end: 20130206
  13. 5-FU [Suspect]
     Active Substance: FLUOROURACIL
     Dosage: EVERY OTHER WEEK
     Route: 041
     Dates: start: 20130206, end: 20130206
  14. IRINOTECAN [Suspect]
     Active Substance: IRINOTECAN
     Dosage: EVERY OTHER WEEK
     Route: 042
     Dates: start: 20130118, end: 20130118
  15. 5-FU [Suspect]
     Active Substance: FLUOROURACIL
     Dosage: EVERY OTHER WEEK
     Route: 041
     Dates: start: 20130118, end: 20130118
  16. LEUCOVORIN. [Suspect]
     Active Substance: LEUCOVORIN
     Indication: COLORECTAL CANCER METASTATIC
     Route: 042
     Dates: start: 20121229, end: 20121229
  17. PALONOSETRON [Concomitant]
     Active Substance: PALONOSETRON
     Indication: PRODUCT USED FOR UNKNOWN INDICATION
     Dates: start: 20121229, end: 20121229

REACTIONS (1)
  - Lung infection [Recovered/Resolved]

NARRATIVE: CASE EVENT DATE: 20130207
